FAERS Safety Report 12718342 (Version 2)
Quarter: 2016Q4

REPORT INFORMATION
  Report Type: Spontaneous
  Country: US (occurrence: US)
  Receive Date: 20160906
  Receipt Date: 20161012
  Transmission Date: 20170207
  Serious: No
  Sender: FDA-Public Use
  Company Number: US-B.I. PHARMACEUTICALS,INC./RIDGEFIELD-2016-BI-57166BP

PATIENT
  Age: 77 Year
  Sex: Female

DRUGS (2)
  1. SPIRIVA [Suspect]
     Active Substance: TIOTROPIUM BROMIDE MONOHYDRATE
     Route: 048
     Dates: start: 20160830, end: 20160830
  2. SPIRIVA [Suspect]
     Active Substance: TIOTROPIUM BROMIDE MONOHYDRATE
     Indication: MYOCARDIAL INFARCTION
     Dosage: STRENGTH: 18 MCG
     Route: 055
     Dates: start: 2012

REACTIONS (4)
  - Incorrect dose administered [Unknown]
  - Off label use [Unknown]
  - Incorrect route of drug administration [Recovered/Resolved]
  - Product quality issue [Unknown]

NARRATIVE: CASE EVENT DATE: 2012
